FAERS Safety Report 8033268-3 (Version None)
Quarter: 2012Q1

REPORT INFORMATION
  Report Type: 
  Country: None (occurrence: None)
  Receive Date: 20120110
  Receipt Date: 20111229
  Transmission Date: 20120608
  Serious: Yes (Hospitalization, Other)
  Sender: FDA-Public Use
  Company Number: FR-PFIZER INC-2011291167

PATIENT
  Age: 88 Year
  Sex: Male

DRUGS (8)
  1. SECTRAL [Suspect]
     Dosage: 200 MG, 2X/DAY
     Route: 048
     Dates: start: 20050101, end: 20111001
  2. AMLODIPINE BESYLATE [Concomitant]
     Dosage: UNK
  3. FENOFIBRATE [Concomitant]
     Dosage: UNK
  4. NEXIUM [Suspect]
     Dosage: 40 MG, 2X/DAY
     Route: 048
     Dates: start: 20050101
  5. IMOVANE [Suspect]
     Dosage: 7.5 MG, DAILY
     Route: 048
     Dates: start: 20050101
  6. BROMAZEPAM [Concomitant]
     Dosage: UNK
  7. RAMIPRIL [Suspect]
     Indication: MYOCARDIAL ISCHAEMIA
     Dosage: 10 MG, DAILY
     Route: 048
     Dates: start: 20050101
  8. PLAVIX [Concomitant]
     Dosage: UNK

REACTIONS (5)
  - COGNITIVE DISORDER [None]
  - HYPONATRAEMIA [None]
  - BRADYCARDIA [None]
  - MALAISE [None]
  - HYPERKALAEMIA [None]
